FAERS Safety Report 10167628 (Version 1)
Quarter: 2014Q2

REPORT INFORMATION
  Report Type: Report from Study
  Country: US (occurrence: US)
  Receive Date: 20140512
  Receipt Date: 20140512
  Transmission Date: 20141212
  Serious: Yes (Other)
  Sender: FDA-Public Use
  Company Number: US-GILEAD-2014-0101757

PATIENT
  Age: 67 Year
  Sex: Male

DRUGS (3)
  1. SOFOSBUVIR [Suspect]
     Indication: CHRONIC HEPATITIS C
     Dosage: 400 MG, UNK
     Route: 065
     Dates: start: 20140208
  2. RIBAVIRIN [Concomitant]
  3. PEGINTERFERON ALFA [Concomitant]

REACTIONS (12)
  - Pancytopenia [Recovering/Resolving]
  - Rhinorrhoea [Recovering/Resolving]
  - Dry throat [Recovering/Resolving]
  - Productive cough [Unknown]
  - Fatigue [Recovering/Resolving]
  - Insomnia [Recovering/Resolving]
  - Dry skin [Recovering/Resolving]
  - Pruritus [Recovering/Resolving]
  - Myalgia [Recovering/Resolving]
  - Dry mouth [Recovering/Resolving]
  - Irritability [Recovering/Resolving]
  - Asthenia [Unknown]
